FAERS Safety Report 23707319 (Version 1)
Quarter: 2024Q2

REPORT INFORMATION
  Report Type: Spontaneous
  Country: CN (occurrence: CN)
  Receive Date: 20240404
  Receipt Date: 20240404
  Transmission Date: 20240716
  Serious: Yes (Hospitalization, Other)
  Sender: FDA-Public Use
  Company Number: CN-009507513-2404CHN000693

PATIENT
  Age: 42 Year
  Sex: Male
  Weight: 86 kg

DRUGS (4)
  1. CILASTATIN SODIUM\IMIPENEM [Suspect]
     Active Substance: CILASTATIN SODIUM\IMIPENEM
     Indication: Anti-infective therapy
     Dosage: 2 GRAM, TID (ALSO REPORTED AS DOSE: 1G, FREQUENCY: Q6H IN THE ORIGINAL AGENCY REPORT
     Route: 041
     Dates: start: 20240322, end: 20240325
  2. VANCOMYCIN HYDROCHLORIDE [Suspect]
     Active Substance: VANCOMYCIN HYDROCHLORIDE
     Indication: Anti-infective therapy
     Dosage: 1 GRAM, Q8H
     Route: 041
     Dates: start: 20240320, end: 20240325
  3. SODIUM CHLORIDE [Concomitant]
     Active Substance: SODIUM CHLORIDE
     Indication: Medication dilution
     Dosage: 0.9%, 100 MILLILITER, Q8H
     Route: 041
     Dates: start: 20240320, end: 20240325
  4. SODIUM CHLORIDE [Concomitant]
     Active Substance: SODIUM CHLORIDE
     Dosage: 0.9%, 100 MILLILITER, TID (ALSO REPORTED AS Q6H)
     Route: 041
     Dates: start: 20240322, end: 20240325

REACTIONS (3)
  - Blood creatinine increased [Unknown]
  - Renal injury [Unknown]
  - Overdose [Unknown]

NARRATIVE: CASE EVENT DATE: 20240301
